FAERS Safety Report 7247722-5 (Version None)
Quarter: 2011Q1

REPORT INFORMATION
  Report Type: 
  Country: None (occurrence: None)
  Receive Date: 20110127
  Receipt Date: 20110119
  Transmission Date: 20110831
  Serious: Yes (Hospitalization)
  Sender: FDA-Public Use
  Company Number: JP-MERCK-1101USA02091

PATIENT
  Age: 73 Year
  Sex: Female

DRUGS (4)
  1. ALESION [Concomitant]
     Route: 048
  2. COZAAR [Suspect]
     Route: 048
  3. PEPCID [Concomitant]
     Route: 048
  4. LIPITOR [Concomitant]
     Route: 048

REACTIONS (1)
  - HYPOGLYCAEMIA [None]
